FAERS Safety Report 8219472-X (Version None)
Quarter: 2012Q1

REPORT INFORMATION
  Report Type: 
  Country: None (occurrence: None)
  Receive Date: 20120319
  Receipt Date: 20120318
  Transmission Date: 20120608
  Serious: No
  Sender: FDA-Public Use
  Company Number: US-PFIZER INC-2012070413

PATIENT
  Sex: Female
  Weight: 49.887 kg

DRUGS (3)
  1. ZOFRAN [Concomitant]
     Indication: NAUSEA
     Dosage: 4 MG, AS NEEDED
     Dates: start: 20120301
  2. CHANTIX [Suspect]
     Indication: SMOKING CESSATION THERAPY
     Dosage: 0.5 MG, DAILY
     Route: 048
     Dates: start: 20120314
  3. BENTYL [Concomitant]
     Indication: ABDOMINAL PAIN UPPER
     Dosage: 20 MG, AS NEEDED
     Dates: start: 20120301

REACTIONS (2)
  - SLEEP DISORDER [None]
  - RESTLESS LEGS SYNDROME [None]
